FAERS Safety Report 23169528 (Version 1)
Quarter: 2023Q4

REPORT INFORMATION
  Report Type: Spontaneous
  Country: DE (occurrence: DE)
  Receive Date: 20231110
  Receipt Date: 20231110
  Transmission Date: 20240109
  Serious: Yes (Hospitalization, Other)
  Sender: FDA-Public Use
  Company Number: None

PATIENT
  Age: 82 Year
  Sex: Female

DRUGS (5)
  1. PREDNISOLONE [Interacting]
     Active Substance: PREDNISOLONE
     Indication: Vasculitis
     Dosage: 40 MILLIGRAM, INITIAL DOSE
     Route: 065
  2. PREDNISOLONE [Interacting]
     Active Substance: PREDNISOLONE
     Dosage: LOW DOSE
     Route: 065
  3. TOCILIZUMAB [Suspect]
     Active Substance: TOCILIZUMAB
     Indication: Rheumatoid arthritis
     Dosage: 162 MILLIGRAM, ONCE A WEEK
     Route: 058
  4. RIFAMPIN [Interacting]
     Active Substance: RIFAMPIN
     Indication: Prophylactic chemotherapy
     Dosage: 300 MILLIGRAM, EVERY 12 HRS, 1-0-1
     Route: 065
  5. ETANERCEPT [Concomitant]
     Active Substance: ETANERCEPT
     Indication: Rheumatoid arthritis
     Dosage: 50 MILLIGRAM, ONCE A WEEK
     Route: 065

REACTIONS (4)
  - Drug interaction [Recovered/Resolved]
  - Tuberculosis [Recovered/Resolved]
  - Pulmonary tuberculosis [Recovered/Resolved]
  - Off label use [Unknown]
